FAERS Safety Report 10096585 (Version 2)
Quarter: 2014Q2

REPORT INFORMATION
  Report Type: Spontaneous
  Country: PE (occurrence: PE)
  Receive Date: 20140422
  Receipt Date: 20140502
  Transmission Date: 20141212
  Serious: Yes (Other)
  Sender: FDA-Public Use
  Company Number: PE-BRISTOL-MYERS SQUIBB COMPANY-20647582

PATIENT
  Age: 73 Year
  Sex: Male
  Weight: 70 kg

DRUGS (3)
  1. ERBITUX [Suspect]
     Indication: LUNG ADENOCARCINOMA
     Dosage: 31MAR14-UNK 1DF=720MG(400MG/M2),?07APR14-STOP 1DF =450MG(250MG/M2)
     Dates: start: 20140331
  2. DOCETAXEL [Suspect]
     Indication: LUNG ADENOCARCINOMA
     Dosage: 31MAR14-UNK,07APR14-ONGOING: 1DF=108MG(60MG/M2)
     Dates: start: 20140331
  3. HYZAAR [Concomitant]
     Indication: HYPERTENSION

REACTIONS (2)
  - Stevens-Johnson syndrome [Recovered/Resolved]
  - Off label use [Unknown]
